FAERS Safety Report 25356413 (Version 1)
Quarter: 2025Q2

REPORT INFORMATION
  Report Type: Spontaneous
  Country: CN (occurrence: CN)
  Receive Date: 20250526
  Receipt Date: 20250526
  Transmission Date: 20250717
  Serious: Yes (Other)
  Sender: Kenvue
  Company Number: CN-KENVUE-20250506641

PATIENT

DRUGS (1)
  1. CHILDRENS MOTRIN [Suspect]
     Active Substance: IBUPROFEN
     Indication: Product used for unknown indication
     Route: 048
     Dates: start: 20250509

REACTIONS (2)
  - Intentional product misuse [Unknown]
  - Intentional overdose [Unknown]

NARRATIVE: CASE EVENT DATE: 20250509
